FAERS Safety Report 20426546 (Version 1)
Quarter: 2022Q1

REPORT INFORMATION
  Report Type: Report from Study
  Country: US (occurrence: US)
  Receive Date: 20220204
  Receipt Date: 20220204
  Transmission Date: 20220423
  Serious: No
  Sender: FDA-Public Use
  Company Number: US-EXELIXIS-CABO-21045187

PATIENT
  Age: 66 Year
  Sex: Female

DRUGS (5)
  1. CABOMETYX [Suspect]
     Active Substance: CABOZANTINIB S-MALATE
     Indication: Renal cell carcinoma
     Dosage: 20 MG
     Route: 048
     Dates: start: 202106
  2. CABOMETYX [Suspect]
     Active Substance: CABOZANTINIB S-MALATE
     Dosage: 20 MG
     Route: 048
  3. CABOMETYX [Suspect]
     Active Substance: CABOZANTINIB S-MALATE
     Dosage: 40 MG, QD
     Route: 048
     Dates: start: 202110
  4. CABOMETYX [Suspect]
     Active Substance: CABOZANTINIB S-MALATE
     Dosage: 40 MG, QOD
     Route: 048
  5. CABOMETYX [Suspect]
     Active Substance: CABOZANTINIB S-MALATE
     Dosage: 20 MG/ 40 MG ON ALTENRAT DAY
     Route: 048
     Dates: start: 20211014

REACTIONS (7)
  - Skin exfoliation [Unknown]
  - Blister [Recovering/Resolving]
  - Erythema [Recovered/Resolved]
  - Constipation [Recovering/Resolving]
  - Tremor [Unknown]
  - Inappropriate schedule of product administration [Unknown]
  - Drug interaction [Unknown]

NARRATIVE: CASE EVENT DATE: 20210702
